FAERS Safety Report 5923901-1 (Version None)
Quarter: 2008Q4

REPORT INFORMATION
  Report Type: 
  Country: None (occurrence: None)
  Receive Date: 20081020
  Receipt Date: 20081010
  Transmission Date: 20090506
  Serious: Yes (Hospitalization, Disabling)
  Sender: FDA-Public Use
  Company Number: US-MERCK-0711USA03530

PATIENT
  Age: 54 Year
  Sex: Female
  Weight: 60 kg

DRUGS (7)
  1. FOSAMAX [Suspect]
     Indication: OSTEOPOROSIS
     Route: 048
     Dates: end: 20050101
  2. FOSAMAX [Suspect]
     Route: 048
     Dates: start: 19970101, end: 20030101
  3. FOSAMAX [Suspect]
     Route: 048
     Dates: start: 20020311
  4. PREMARIN [Concomitant]
     Route: 065
     Dates: start: 19950223, end: 20030101
  5. PROVERA [Concomitant]
     Route: 065
     Dates: start: 19950223, end: 20030101
  6. FOSAMAX [Suspect]
     Route: 048
     Dates: start: 20051215, end: 20060417
  7. BONIVA [Suspect]
     Route: 065
     Dates: start: 20060801, end: 20070101

REACTIONS (36)
  - ABDOMINAL PAIN UPPER [None]
  - ANXIETY [None]
  - ASTHMA [None]
  - BACK PAIN [None]
  - BRONCHITIS [None]
  - CHRONIC OBSTRUCTIVE PULMONARY DISEASE [None]
  - CIRCADIAN RHYTHM SLEEP DISORDER [None]
  - CONSTIPATION [None]
  - DEPRESSION [None]
  - DIZZINESS [None]
  - DUODENITIS [None]
  - DYSPHAGIA [None]
  - EMPHYSEMA [None]
  - FALL [None]
  - GASTRIC ULCER [None]
  - GASTRITIS [None]
  - GASTROOESOPHAGEAL REFLUX DISEASE [None]
  - HAEMORRHAGE [None]
  - HAEMORRHOIDS [None]
  - NAUSEA [None]
  - NOCTURIA [None]
  - OESOPHAGEAL STENOSIS [None]
  - OSTEOARTHRITIS [None]
  - OSTEONECROSIS [None]
  - OSTEOPOROSIS [None]
  - OVERDOSE [None]
  - PNEUMONIA [None]
  - POSTMENOPAUSE [None]
  - PYREXIA [None]
  - SINUSITIS [None]
  - SPINAL COMPRESSION FRACTURE [None]
  - SPINAL DEFORMITY [None]
  - SPINAL DISORDER [None]
  - UPPER GASTROINTESTINAL HAEMORRHAGE [None]
  - VISUAL IMPAIRMENT [None]
  - WEIGHT DECREASED [None]
